FAERS Safety Report 12795726 (Version 2)
Quarter: 2016Q4

REPORT INFORMATION
  Report Type: Spontaneous
  Country: US (occurrence: US)
  Receive Date: 20160929
  Receipt Date: 20161005
  Transmission Date: 20170207
  Serious: Yes (Death, Other)
  Sender: FDA-Public Use
  Company Number: US-CELGENEUS-USA-2016096620

PATIENT
  Age: 90 Year
  Sex: Female

DRUGS (1)
  1. REVLIMID [Suspect]
     Active Substance: LENALIDOMIDE
     Indication: PLASMA CELL MYELOMA
     Dosage: 5 MILLIGRAM
     Route: 048
     Dates: start: 20100512, end: 20121229

REACTIONS (4)
  - Malnutrition [Unknown]
  - Respiratory failure [Fatal]
  - Plasma cell myeloma [Unknown]
  - Dehydration [Unknown]

NARRATIVE: CASE EVENT DATE: 20130108
